FAERS Safety Report 11182705 (Version 1)
Quarter: 2015Q2

REPORT INFORMATION
  Report Type: Spontaneous
  Country: IT (occurrence: IT)
  Receive Date: 20150611
  Receipt Date: 20150611
  Transmission Date: 20150821
  Serious: Yes (Hospitalization)
  Sender: FDA-Public Use
  Company Number: IT-BAYER-2015-324018

PATIENT
  Age: 89 Year
  Sex: Female

DRUGS (2)
  1. TACHIPIRINA [Concomitant]
     Active Substance: ACETAMINOPHEN
     Dosage: 500 MG, UNK
     Route: 048
  2. CARDIOASPIRIN [Suspect]
     Active Substance: ASPIRIN
     Indication: MYOCARDIAL ISCHAEMIA
     Dosage: 100 MG, QD
     Route: 048
     Dates: start: 20140101, end: 20150508

REACTIONS (1)
  - Metrorrhagia [Recovering/Resolving]

NARRATIVE: CASE EVENT DATE: 20150507
